FAERS Safety Report 8676388 (Version 2)
Quarter: 2012Q4

REPORT INFORMATION
  Report Type: 
  Country: FR (occurrence: FR)
  Receive Date: 20120720
  Receipt Date: 20121115
  Transmission Date: 20130627
  Serious: Yes (Other)
  Sender: FDA-Public Use
  Company Number: FR-BAXTER-2012BAX010847

PATIENT
  Age: 56 Year
  Sex: Male

DRUGS (8)
  1. ENDOXAN 2000 MG, LYOPHILISAT POUR SOLUTION INJECTABLE [Suspect]
     Indication: DERMATOSCLEROSIS
     Route: 042
     Dates: start: 20120424, end: 20120606
  2. BACTRIM [Suspect]
     Indication: INFECTION PROPHYLAXIS
     Dosage: 800/160 mg then 200/40 mg
     Route: 048
     Dates: start: 20120418, end: 20120620
  3. CORTANCYL [Concomitant]
     Indication: DRUG USE FOR UNKNOWN INDICATION
  4. ZOPICLONE [Concomitant]
     Indication: DRUG USE FOR UNKNOWN INDICATION
  5. TEMERIT [Concomitant]
     Indication: DRUG USE FOR UNKNOWN INDICATION
  6. STABLON [Concomitant]
     Indication: DRUG USE FOR UNKNOWN INDICATION
  7. LEXOMIL [Concomitant]
     Indication: DRUG USE FOR UNKNOWN INDICATION
  8. KARDEGIC [Concomitant]
     Indication: DRUG USE FOR UNKNOWN INDICATION

REACTIONS (3)
  - Hepatitis [Recovered/Resolved]
  - Embolism venous [Unknown]
  - MEDIASTINAL LYMPH NODE METASTASIS [Unknown]
